FAERS Safety Report 25617902 (Version 1)
Quarter: 2025Q3

REPORT INFORMATION
  Report Type: Spontaneous
  Country: US (occurrence: US)
  Receive Date: 20250729
  Receipt Date: 20250729
  Transmission Date: 20251021
  Serious: No
  Sender: ELI LILLY AND COMPANY
  Company Number: US-ELI_LILLY_AND_COMPANY-US202507026239

PATIENT
  Age: 57 Year
  Sex: Female

DRUGS (4)
  1. HUMALOG [Suspect]
     Active Substance: INSULIN LISPRO
     Indication: Type 1 diabetes mellitus
     Route: 058
     Dates: start: 1985
  2. HUMALOG [Suspect]
     Active Substance: INSULIN LISPRO
     Indication: Type 1 diabetes mellitus
     Route: 058
     Dates: start: 1985
  3. HUMALOG [Suspect]
     Active Substance: INSULIN LISPRO
     Route: 058
     Dates: start: 1985
  4. HUMALOG [Suspect]
     Active Substance: INSULIN LISPRO
     Route: 058
     Dates: start: 1985

REACTIONS (1)
  - Eye disorder [Unknown]
